FAERS Safety Report 7405025-X (Version None)
Quarter: 2011Q2

REPORT INFORMATION
  Report Type: 
  Country: None (occurrence: None)
  Receive Date: 20110411
  Receipt Date: 20110328
  Transmission Date: 20111010
  Serious: Yes (Hospitalization)
  Sender: FDA-Public Use
  Company Number: US-SOLVAY-00211002690

PATIENT
  Age: 878 Month
  Sex: Male
  Weight: 70.454 kg

DRUGS (3)
  1. TESTOSTERONE [Suspect]
     Indication: BLOOD TESTOSTERONE DECREASED
     Dosage: DAILY DOSE:  UNKNOWN
     Route: 065
     Dates: end: 20110318
  2. VITAMINS [Concomitant]
     Indication: SUPPLEMENTATION THERAPY
     Dosage: DAILY DOSE:  UNKNOWN
     Route: 065
  3. ANDROGEL [Suspect]
     Indication: BLOOD TESTOSTERONE DECREASED
     Dosage: DAILY DOSE: 2 PACKETS A DAY
     Route: 062
     Dates: start: 20110318

REACTIONS (1)
  - WHITE BLOOD CELL COUNT INCREASED [None]
